FAERS Safety Report 5100615-1 (Version None)
Quarter: 2006Q3

REPORT INFORMATION
  Report Type: 
  Country: None (occurrence: None)
  Receive Date: 20060907
  Receipt Date: 20060907
  Transmission Date: 20061208
  Serious: Yes (Hospitalization)
  Sender: FDA-Public Use
  Company Number: None

PATIENT
  Sex: Female
  Weight: 90.9 kg

DRUGS (2)
  1. CYCLOPHOSPHAMIDE [Suspect]
     Dosage: 1200 MG
  2. DOXORUBICIN HYDROCHLORIDE [Suspect]
     Dosage: 120 MG

REACTIONS (7)
  - ATRIAL FIBRILLATION [None]
  - DIARRHOEA [None]
  - FEBRILE NEUTROPENIA [None]
  - HAEMOGLOBIN ABNORMAL [None]
  - HYPOKALAEMIA [None]
  - OCCULT BLOOD POSITIVE [None]
  - THROMBOCYTOPENIA [None]
